FAERS Safety Report 6175844-9 (Version None)
Quarter: 2009Q2

REPORT INFORMATION
  Report Type: 
  Country: None (occurrence: None)
  Receive Date: 20090501
  Receipt Date: 20090326
  Transmission Date: 20091009
  Serious: Yes (Death, Other)
  Sender: FDA-Public Use
  Company Number: US-AMGEN-US344279

PATIENT
  Sex: Male

DRUGS (3)
  1. NPLATE [Suspect]
     Indication: THROMBOCYTOPENIA
     Dates: start: 20090324, end: 20090331
  2. CORTICOSTEROIDS [Concomitant]
     Dates: start: 20070731
  3. DANAZOL [Concomitant]
     Dates: start: 20090323

REACTIONS (2)
  - DEATH [None]
  - MYELODYSPLASTIC SYNDROME [None]
